FAERS Safety Report 11758132 (Version 1)
Quarter: 2015Q4

REPORT INFORMATION
  Report Type: Report from Study
  Country: US (occurrence: None)
  Receive Date: 20151117
  Receipt Date: 20151117
  Transmission Date: 20160304
  Serious: Yes (Other)
  Sender: FDA-Public Use
  Company Number: 2015US002149

PATIENT
  Age: 59 Year
  Sex: Female

DRUGS (19)
  1. PROAIR HFA [Concomitant]
     Active Substance: ALBUTEROL SULFATE
  2. XOPENEX HFA (LEVOSALBUTAMOL GTARTRATE) [Concomitant]
  3. FUROSEMIDE. [Concomitant]
     Active Substance: FUROSEMIDE
  4. AMLODIPINE [Concomitant]
     Active Substance: AMLODIPINE BESYLATE
  5. VITAMIN D (ERGOCALCIFEROL) [Concomitant]
     Active Substance: ERGOCALCIFEROL
  6. POTASSIUM [Concomitant]
     Active Substance: POTASSIUM
  7. TIZANIDINE. [Concomitant]
     Active Substance: TIZANIDINE
  8. GABAPENTIN. [Concomitant]
     Active Substance: GABAPENTIN
  9. ALBUTEROL SULFATE (SALBUTAMOL SULFATE) [Concomitant]
     Active Substance: ALBUTEROL SULFATE
  10. ALENDRONATE (ALENDRONATE SODIUM) [Concomitant]
     Active Substance: ALENDRONATE SODIUM
  11. PREDNISONE. [Concomitant]
     Active Substance: PREDNISONE
  12. GLASSIA [Suspect]
     Active Substance: .ALPHA.1-PROTEINASE INHIBITOR HUMAN
     Indication: ALPHA-1 ANTI-TRYPSIN DEFICIENCY
     Route: 042
  13. CARVEDILOL. [Concomitant]
     Active Substance: CARVEDILOL
  14. AMLODIPINE BESYLATE (AMLODIPINE BESILATE) [Concomitant]
     Active Substance: AMLODIPINE BESYLATE
  15. LOVASTATIN. [Concomitant]
     Active Substance: LOVASTATIN
  16. TRAMADOL. [Concomitant]
     Active Substance: TRAMADOL
  17. CALCIUM [Concomitant]
     Active Substance: CALCIUM
  18. SPIRIVA [Concomitant]
     Active Substance: TIOTROPIUM BROMIDE MONOHYDRATE
  19. BREO ELLIPTA (FLUTICASONE FURATE, VILANTEROL TRIFENATATE) [Concomitant]

REACTIONS (6)
  - Cystitis [None]
  - Drug dose omission [None]
  - Feeling abnormal [None]
  - Candida infection [None]
  - Chronic obstructive pulmonary disease [None]
  - Nasopharyngitis [None]

NARRATIVE: CASE EVENT DATE: 201502
